FAERS Safety Report 12337201 (Version 1)
Quarter: 2016Q2

REPORT INFORMATION
  Report Type: Spontaneous
  Country: US (occurrence: None)
  Receive Date: 20160504
  Receipt Date: 20160504
  Transmission Date: 20160815
  Serious: No
  Sender: FDA-Public Use
  Company Number: None

PATIENT
  Age: 70 Year
  Sex: Female
  Weight: 63.5 kg

DRUGS (1)
  1. ATORVASTATIN [Suspect]
     Active Substance: ATORVASTATIN
     Indication: BLOOD CHOLESTEROL INCREASED
     Route: 048
     Dates: start: 201502, end: 20150521

REACTIONS (5)
  - Eructation [None]
  - Nausea [None]
  - Diarrhoea [None]
  - Abdominal discomfort [None]
  - Alopecia [None]

NARRATIVE: CASE EVENT DATE: 201505
